FAERS Safety Report 9418017 (Version 1)
Quarter: 2013Q3

REPORT INFORMATION
  Report Type: Spontaneous
  Country: JP (occurrence: JP)
  Receive Date: 20130724
  Receipt Date: 20130724
  Transmission Date: 20140515
  Serious: Yes (Hospitalization)
  Sender: FDA-Public Use
  Company Number: JP-UCBSA-092497

PATIENT
  Age: 80 Year
  Sex: Female

DRUGS (2)
  1. CIMZIA [Suspect]
     Indication: RHEUMATOID ARTHRITIS
     Dosage: DOSE: 200 MG, SYRINGE
     Route: 058
     Dates: start: 20130322, end: 201307
  2. THYRADIN [Suspect]
     Route: 048
     Dates: end: 201307

REACTIONS (2)
  - Convulsion [Recovered/Resolved]
  - Hypocalcaemia [Recovered/Resolved]
